FAERS Safety Report 19472454 (Version 7)
Quarter: 2024Q4

REPORT INFORMATION
  Report Type: Spontaneous
  Country: US (occurrence: US)
  Receive Date: 20210629
  Receipt Date: 20241119
  Transmission Date: 20250115
  Serious: Yes (Other)
  Sender: PFIZER
  Company Number: US-PFIZER INC-2021737963

PATIENT
  Age: 75 Year
  Sex: Female

DRUGS (7)
  1. IBRANCE [Suspect]
     Active Substance: PALBOCICLIB
     Indication: Breast cancer female
     Dosage: UNK
  2. IBRANCE [Suspect]
     Active Substance: PALBOCICLIB
     Indication: Invasive lobular breast carcinoma
     Dosage: 100 MG, DAILY
     Dates: start: 202101
  3. IBRANCE [Suspect]
     Active Substance: PALBOCICLIB
     Indication: Breast cancer metastatic
     Dosage: 75 MG, CYCLIC (75 MG TABLET, DAILY FOR 21 DAYS EVERY 28 DAYS; QUANTITY: 21 TABLETS, REFILLS: 11)
     Route: 048
  4. IBRANCE [Suspect]
     Active Substance: PALBOCICLIB
     Indication: Hormone receptor positive breast cancer
  5. IBRANCE [Suspect]
     Active Substance: PALBOCICLIB
     Indication: Metastases to bone
  6. IBRANCE [Suspect]
     Active Substance: PALBOCICLIB
     Indication: Metastases to lymph nodes
  7. ANASTROZOLE [Concomitant]
     Active Substance: ANASTROZOLE
     Dosage: UNK
     Dates: start: 202101

REACTIONS (4)
  - Leukopenia [Not Recovered/Not Resolved]
  - Neutropenia [Recovering/Resolving]
  - Fatigue [Recovering/Resolving]
  - Weight decreased [Recovering/Resolving]
